FAERS Safety Report 19965331 (Version 2)
Quarter: 2021Q4

REPORT INFORMATION
  Report Type: Spontaneous
  Country: GB (occurrence: GB)
  Receive Date: 20211018
  Receipt Date: 20211105
  Transmission Date: 20220303
  Serious: Yes (Hospitalization, Other)
  Sender: FDA-Public Use
  Company Number: GB-AUROBINDO-AUR-APL-2021-040584

PATIENT
  Age: 68 Year
  Sex: Female

DRUGS (1)
  1. ARIPIPRAZOLE [Suspect]
     Active Substance: ARIPIPRAZOLE
     Indication: Major depression
     Dosage: 5 MG, QD
     Route: 048

REACTIONS (3)
  - Bradycardia [Not Recovered/Not Resolved]
  - Hypothermia [Not Recovered/Not Resolved]
  - Product use in unapproved indication [Unknown]
